FAERS Safety Report 15337969 (Version 1)
Quarter: 2018Q3

REPORT INFORMATION
  Report Type: Spontaneous
  Country: US (occurrence: US)
  Receive Date: 20180831
  Receipt Date: 20180831
  Transmission Date: 20181010
  Serious: No
  Sender: FDA-Public Use
  Company Number: US-GLENMARK PHARMACEUTICALS-2018GMK036263

PATIENT

DRUGS (1)
  1. MUPIROCIN. [Suspect]
     Active Substance: MUPIROCIN
     Indication: PROMOTION OF WOUND HEALING
     Dosage: 1 DF, TID
     Route: 061
     Dates: start: 201605, end: 20180619

REACTIONS (4)
  - Expired product administered [Unknown]
  - Erythema [Unknown]
  - Drug effective for unapproved indication [Unknown]
  - Drug ineffective for unapproved indication [Unknown]

NARRATIVE: CASE EVENT DATE: 201605
